FAERS Safety Report 8134460-X (Version None)
Quarter: 2012Q1

REPORT INFORMATION
  Report Type: 
  Country: None (occurrence: None)
  Receive Date: 20120214
  Receipt Date: 20120214
  Transmission Date: 20120608
  Serious: Yes (Hospitalization)
  Sender: FDA-Public Use
  Company Number: None

PATIENT
  Age: 63 Year
  Sex: Male
  Weight: 145 kg

DRUGS (17)
  1. ASPIRIN [Concomitant]
     Route: 048
  2. CLOBETASOL PROPIONATE [Concomitant]
     Route: 061
  3. KETOCONAZOLE TOPICAL [Concomitant]
     Route: 061
  4. LOSARTAN POTASSIUM [Concomitant]
     Route: 048
  5. FLORAJEN [Concomitant]
     Route: 048
  6. ALBUTEROL/IPRATROPIUM NEBULIZER [Concomitant]
  7. CHOLECALCIFEROL [Concomitant]
     Route: 048
  8. FORMOTEROL INHALATION [Concomitant]
  9. FUROSEMIDE [Concomitant]
     Route: 048
  10. REGULAR INSULIN [Concomitant]
  11. METFORMIN HCL [Concomitant]
     Route: 048
  12. ROSUVASTATIN [Concomitant]
     Route: 048
  13. CETIRIZINE [Concomitant]
     Route: 048
  14. SENNA [Concomitant]
  15. MORPHINE [Suspect]
     Dosage: UNKNOWN
     Route: 048
  16. ACETAMINOPHEN W/ CODEINE TAB [Concomitant]
     Dosage: 1 TO 2 TABLETS
     Route: 048
  17. MOMETASONE INHALER [Concomitant]

REACTIONS (4)
  - DYSPNOEA [None]
  - HYPOXIA [None]
  - ACUTE RESPIRATORY FAILURE [None]
  - CHRONIC OBSTRUCTIVE PULMONARY DISEASE [None]
